FAERS Safety Report 14536705 (Version 1)
Quarter: 2018Q1

REPORT INFORMATION
  Report Type: Spontaneous
  Country: ES (occurrence: ES)
  Receive Date: 20180215
  Receipt Date: 20180215
  Transmission Date: 20180509
  Serious: Yes (Hospitalization, Other)
  Sender: FDA-Public Use
  Company Number: PHHY2018ES018293

PATIENT
  Sex: Male

DRUGS (1)
  1. REVOLADE [Suspect]
     Active Substance: ELTROMBOPAG
     Indication: IMMUNE THROMBOCYTOPENIC PURPURA
     Dosage: 25 MG, QD
     Route: 048
     Dates: start: 20171202, end: 20180202

REACTIONS (3)
  - Coombs positive haemolytic anaemia [Recovered/Resolved]
  - Jaundice [Unknown]
  - Pallor [Unknown]

NARRATIVE: CASE EVENT DATE: 20180131
